FAERS Safety Report 5745601-3 (Version None)
Quarter: 2008Q2

REPORT INFORMATION
  Report Type: 
  Country: None (occurrence: None)
  Receive Date: 20080521
  Receipt Date: 20080509
  Transmission Date: 20081010
  Serious: Yes (Other)
  Sender: FDA-Public Use
  Company Number: US-PFIZER INC-2008025861

PATIENT
  Sex: Male
  Weight: 77.1 kg

DRUGS (6)
  1. DILANTIN [Suspect]
     Indication: CONVULSION
     Route: 048
  2. DILANTIN [Suspect]
     Indication: EPILEPSY
  3. PHENYTOIN [Suspect]
     Indication: CONVULSION
  4. NORVASC [Concomitant]
  5. HYDROCHLOROTHIAZIDE [Concomitant]
  6. ENALAPRIL MALEATE [Concomitant]

REACTIONS (3)
  - EAR DEFORMITY ACQUIRED [None]
  - HEADACHE [None]
  - WEIGHT INCREASED [None]
